FAERS Safety Report 10187364 (Version 1)
Quarter: 2014Q2

REPORT INFORMATION
  Report Type: Report from Study
  Country: US (occurrence: US)
  Receive Date: 20140522
  Receipt Date: 20140522
  Transmission Date: 20141212
  Serious: Yes (Life-Threatening)
  Sender: FDA-Public Use
  Company Number: US-ROCHE-1400760

PATIENT
  Sex: Female
  Weight: 82 kg

DRUGS (10)
  1. XOLAIR [Suspect]
     Indication: ASTHMA
     Route: 058
     Dates: start: 20111208, end: 20111229
  2. XOLAIR [Suspect]
     Route: 058
  3. XOLAIR [Suspect]
     Route: 058
  4. VALIUM [Suspect]
     Indication: CONVULSION
     Route: 065
  5. ALLEGRA [Concomitant]
     Route: 048
  6. ZYRTEC [Concomitant]
     Dosage: PM AND 3 PILLS AT FIRST SIGN OF ANY RXN
     Route: 048
  7. SINGULAIR [Concomitant]
     Route: 048
  8. DULERA [Concomitant]
     Dosage: 2 PUFFS
     Route: 065
  9. MARIJUANA [Concomitant]
  10. TYLENOL [Concomitant]
     Route: 048

REACTIONS (9)
  - Anaphylactic reaction [Unknown]
  - Loss of consciousness [Unknown]
  - Convulsion [Unknown]
  - Asthma [Unknown]
  - Dysphonia [Unknown]
  - Pain [Unknown]
  - Chills [Unknown]
  - Fatigue [Unknown]
  - Headache [Unknown]
